FAERS Safety Report 7452942-0 (Version None)
Quarter: 2011Q2

REPORT INFORMATION
  Report Type: 
  Country: None (occurrence: None)
  Receive Date: 20110502
  Receipt Date: 20110421
  Transmission Date: 20111010
  Serious: Yes (Hospitalization, Congenital Anomaly, Other)
  Sender: FDA-Public Use
  Company Number: US-PFIZER INC-2011089813

PATIENT
  Sex: Male
  Weight: 4.08 kg

DRUGS (1)
  1. ZOLOFT [Suspect]
     Route: 064

REACTIONS (20)
  - AMBLYOPIA [None]
  - HYPOALBUMINAEMIA [None]
  - PNEUMONIA [None]
  - HYPERMETROPIA [None]
  - PENILE SIZE REDUCED [None]
  - TRICUSPID VALVE INCOMPETENCE [None]
  - PULMONARY HYPERTENSION [None]
  - LUNG DISORDER [None]
  - OTITIS MEDIA [None]
  - DACRYOSTENOSIS CONGENITAL [None]
  - JAUNDICE NEONATAL [None]
  - EAR DEFORMITY ACQUIRED [None]
  - ANAEMIA [None]
  - GASTROOESOPHAGEAL REFLUX DISEASE [None]
  - DRUG EXPOSURE DURING PREGNANCY [None]
  - PATENT DUCTUS ARTERIOSUS [None]
  - RESPIRATORY DISTRESS [None]
  - PULMONARY VALVE STENOSIS [None]
  - DEAFNESS BILATERAL [None]
  - DYSPHAGIA [None]
